FAERS Safety Report 17585985 (Version 3)
Quarter: 2020Q2

REPORT INFORMATION
  Report Type: Spontaneous
  Country: IT (occurrence: IT)
  Receive Date: 20200326
  Receipt Date: 20200402
  Transmission Date: 20200713
  Serious: Yes (Other)
  Sender: FDA-Public Use
  Company Number: IT-PFIZER INC-2020127372

PATIENT
  Age: 78 Year
  Sex: Female

DRUGS (2)
  1. RAMUCIRUMAB [Concomitant]
     Active Substance: RAMUCIRUMAB
     Indication: METASTATIC GASTRIC CANCER
     Dosage: 8 MG/KG, CYCLIC (D1,15 IN A 28 DAYS CYCLE)
     Dates: start: 201609, end: 2017
  2. PACLITAXEL. [Suspect]
     Active Substance: PACLITAXEL
     Indication: METASTATIC GASTRIC CANCER
     Dosage: 80 MG/KG, CYCLIC (D1,8,15 IN A 28 DAYS CYCLE)
     Dates: start: 201609, end: 2017

REACTIONS (3)
  - Neurotoxicity [Recovering/Resolving]
  - Off label use [Unknown]
  - Product use in unapproved indication [Unknown]

NARRATIVE: CASE EVENT DATE: 201609
